FAERS Safety Report 16701901 (Version 4)
Quarter: 2025Q3

REPORT INFORMATION
  Report Type: Spontaneous
  Country: EU (occurrence: EU)
  Receive Date: 20190814
  Receipt Date: 20250818
  Transmission Date: 20251021
  Serious: Yes (Death, Hospitalization, Other)
  Sender: AUROBINDO
  Company Number: EU-AUROBINDO-AUR-APL-2019-053296

PATIENT
  Age: 85 Year
  Sex: Male
  Weight: 60 kg

DRUGS (18)
  1. PERINDOPRIL [Suspect]
     Active Substance: PERINDOPRIL
     Indication: Hypertension
     Route: 065
  2. PERINDOPRIL [Suspect]
     Active Substance: PERINDOPRIL
     Indication: Cardiac failure chronic
  3. DEXAMETHASONE [Suspect]
     Active Substance: DEXAMETHASONE
     Indication: Diarrhoea
     Dosage: 4 MILLIGRAM, ONCE A DAY
     Route: 048
  4. DEXAMETHASONE [Suspect]
     Active Substance: DEXAMETHASONE
     Indication: Asthenia
  5. DEXAMETHASONE [Suspect]
     Active Substance: DEXAMETHASONE
     Indication: Weight decreased
  6. DEXAMETHASONE [Suspect]
     Active Substance: DEXAMETHASONE
     Indication: Decreased appetite
  7. PANCREATIN [Suspect]
     Active Substance: PANCRELIPASE
     Indication: Asthenia
     Dosage: 74000 INTERNATIONAL UNIT, ONCE A DAY
     Route: 065
  8. PANCREATIN [Suspect]
     Active Substance: PANCRELIPASE
     Indication: Weight decreased
     Dosage: 150000 INTERNATIONAL UNIT, ONCE A DAY
     Route: 065
  9. PANCREATIN [Suspect]
     Active Substance: PANCRELIPASE
     Indication: Diarrhoea
     Dosage: 25000 INTERNATIONAL UNIT, 3 TIMES A DAY
     Route: 065
  10. PANCREATIN [Suspect]
     Active Substance: PANCRELIPASE
     Indication: Decreased appetite
     Dosage: 50000 INTERNATIONAL UNIT, 3 TIMES A DAY
     Route: 065
  11. PANCREATIN [Suspect]
     Active Substance: PANCRELIPASE
     Indication: Pancreatic carcinoma
  12. TORSEMIDE [Suspect]
     Active Substance: TORSEMIDE
     Indication: Hypertension
     Route: 065
  13. TORSEMIDE [Suspect]
     Active Substance: TORSEMIDE
     Indication: Cardiac failure chronic
  14. ISOPHANE INSULIN [Concomitant]
     Active Substance: INSULIN NOS
     Indication: Product used for unknown indication
     Dosage: 12 IU (INTERNATIONAL UNIT) DAILY; IN THE EVENING
     Route: 065
  15. ISOPHANE INSULIN [Concomitant]
     Active Substance: INSULIN NOS
     Dosage: 18 IU (INTERNATIONAL UNIT) DAILY; 6 UNITS BEFORE THE MEALS IN THE MORNING, AT NOON AND IN THE EVENIN
     Route: 065
  16. ISOPHANE INSULIN [Concomitant]
     Active Substance: INSULIN NOS
     Route: 065
  17. LEVOMEPROMAZINE [Concomitant]
     Active Substance: LEVOMEPROMAZINE
     Indication: Product used for unknown indication
     Dosage: 2.5 MILLIGRAM, 3 TIMES A DAY
     Route: 058
  18. SALINE [Concomitant]
     Active Substance: SODIUM CHLORIDE
     Indication: Product used for unknown indication
     Route: 042

REACTIONS (20)
  - Asthenia [Fatal]
  - Pancreatic neoplasm [Fatal]
  - Nausea [Fatal]
  - Hypotonia [Fatal]
  - Memory impairment [Fatal]
  - Hypotension [Fatal]
  - Weight decreased [Fatal]
  - Urinary incontinence [Fatal]
  - Hyperglycaemia [Unknown]
  - Diarrhoea [Fatal]
  - Visual acuity reduced [Fatal]
  - Decreased appetite [Fatal]
  - Dizziness [Fatal]
  - Orthostatic hypotension [Unknown]
  - Malignant neoplasm progression [Unknown]
  - Diabetes mellitus [Recovered/Resolved]
  - Pancreatic carcinoma [Unknown]
  - Glomerular filtration rate decreased [Unknown]
  - Dehydration [Unknown]
  - Metastases to liver [Unknown]
